FAERS Safety Report 7034039-7 (Version None)
Quarter: 2010Q4

REPORT INFORMATION
  Report Type: 
  Country: None (occurrence: None)
  Receive Date: 20101007
  Receipt Date: 20100930
  Transmission Date: 20110411
  Serious: Yes (Hospitalization)
  Sender: FDA-Public Use
  Company Number: AU-B.I. PHARMACEUTICALS,INC./RIDGEFIELD-2010-AU-00692AU

PATIENT
  Sex: Female

DRUGS (6)
  1. MOBIC [Suspect]
     Indication: PAIN
     Route: 048
  2. PROTOS [Suspect]
     Indication: OSTEOPOROSIS
     Dosage: 2 G
     Route: 048
     Dates: end: 20091015
  3. CRANBERRY [Concomitant]
  4. DITROPAN [Concomitant]
  5. NORVASC [Concomitant]
     Indication: ESSENTIAL HYPERTENSION
  6. SOMAC [Concomitant]
     Indication: OESOPHAGEAL DISORDER

REACTIONS (4)
  - ANGIOEDEMA [None]
  - LIP SWELLING [None]
  - SWOLLEN TONGUE [None]
  - THROMBOPHLEBITIS SUPERFICIAL [None]
